FAERS Safety Report 5408856-0 (Version None)
Quarter: 2007Q3

REPORT INFORMATION
  Report Type: 
  Country: None (occurrence: None)
  Receive Date: 20070808
  Receipt Date: 20070727
  Transmission Date: 20080115
  Serious: Yes (Hospitalization)
  Sender: FDA-Public Use
  Company Number: IT-PFIZER INC-2007062519

PATIENT
  Age: 71 Year
  Sex: Male

DRUGS (8)
  1. UNIQUIN [Suspect]
     Indication: CYSTITIS
     Dosage: DAILY DOSE:400MG
     Route: 048
     Dates: start: 20040418, end: 20040420
  2. TAVANIC [Concomitant]
  3. ALLOPURINOL [Concomitant]
  4. OMNIC [Concomitant]
  5. CARDURA [Concomitant]
  6. PRAVASELECT [Concomitant]
  7. COMBISARTAN [Concomitant]
  8. NOVONORM [Concomitant]

REACTIONS (3)
  - CHEILITIS [None]
  - MUCOSAL INFLAMMATION [None]
  - RASH MACULO-PAPULAR [None]
